FAERS Safety Report 13373706 (Version 2)
Quarter: 2018Q1

REPORT INFORMATION
  Report Type: Spontaneous
  Country: US (occurrence: US)
  Receive Date: 20170327
  Receipt Date: 20180202
  Transmission Date: 20180508
  Serious: No
  Sender: FDA-Public Use
  Company Number: US-PFIZER INC-2017128319

PATIENT
  Age: 57 Year
  Sex: Male

DRUGS (2)
  1. SUTENT [Suspect]
     Active Substance: SUNITINIB MALATE
     Dosage: 37.5 MG, DAILY
     Route: 048
     Dates: start: 201707
  2. SUTENT [Suspect]
     Active Substance: SUNITINIB MALATE
     Indication: RENAL CELL CARCINOMA
     Dosage: 50 MG, DAILY
     Route: 048
     Dates: start: 201408, end: 201706

REACTIONS (6)
  - Thyroid function test abnormal [Not Recovered/Not Resolved]
  - Neoplasm progression [Unknown]
  - Blood pressure increased [Not Recovered/Not Resolved]
  - Diarrhoea [Not Recovered/Not Resolved]
  - Neutrophil count decreased [Not Recovered/Not Resolved]
  - Flatulence [Unknown]

NARRATIVE: CASE EVENT DATE: 2014
